FAERS Safety Report 22099481 (Version 6)
Quarter: 2024Q3

REPORT INFORMATION
  Report Type: Spontaneous
  Country: US (occurrence: US)
  Receive Date: 20230315
  Receipt Date: 20240711
  Transmission Date: 20241016
  Serious: No
  Sender: BIOGEN
  Company Number: US-BIOGEN-2023BI01190292

PATIENT
  Sex: Male

DRUGS (3)
  1. TYSABRI [Suspect]
     Active Substance: NATALIZUMAB
     Indication: Multiple sclerosis
     Dosage: INFUSED OVER 1 HOUR?(25-SEP-2007 TO 09-SEP-2013; 05-DEC-2013 TO 02-JUL-2014; 25-JUL-2014 TO 04-NO...
     Route: 050
     Dates: start: 20070925, end: 20150316
  2. TYSABRI [Suspect]
     Active Substance: NATALIZUMAB
     Route: 050
     Dates: start: 20160603
  3. TYSABRI [Suspect]
     Active Substance: NATALIZUMAB
     Dosage: INFUSED OVER 1 HOUR
     Route: 050

REACTIONS (3)
  - Prescribed underdose [Recovered/Resolved]
  - Multiple sclerosis relapse [Not Recovered/Not Resolved]
  - Multiple sclerosis [Unknown]
